FAERS Safety Report 5949734-8 (Version None)
Quarter: 2008Q4

REPORT INFORMATION
  Report Type: 
  Country: None (occurrence: None)
  Receive Date: 20081112
  Receipt Date: 20081010
  Transmission Date: 20090506
  Serious: No
  Sender: FDA-Public Use
  Company Number: US-BAYER-200835583NA

PATIENT
  Age: 40 Year
  Sex: Female

DRUGS (1)
  1. ULTRAVIST (PHARMACY BULK) [Suspect]
     Dates: start: 20081009, end: 20081009

REACTIONS (3)
  - ERYTHEMA [None]
  - SNEEZING [None]
  - URTICARIA [None]
